FAERS Safety Report 8760185 (Version 3)
Quarter: 2013Q1

REPORT INFORMATION
  Report Type: Spontaneous
  Country: JP (occurrence: None)
  Receive Date: 20120817
  Receipt Date: 20121031
  Transmission Date: 20140127
  Serious: Yes (Hospitalization)
  Sender: FDA-Public Use
  Company Number: 2012000195

PATIENT
  Age: 40 Year
  Sex: Male

DRUGS (3)
  1. ACEON [Suspect]
     Indication: HYPERTENSION
     Route: 048
  2. VANCOMYCIN HYDROCHLORIDE [Suspect]
     Indication: PYREXIA
  3. CEFEPIME HYDROCHLORIDE [Suspect]
     Indication: PYREXIA

REACTIONS (5)
  - Drug reaction with eosinophilia and systemic symptoms [None]
  - Loss of consciousness [None]
  - Convulsion [None]
  - Haemodialysis [None]
  - Renal failure chronic [None]
